FAERS Safety Report 9278822 (Version 2)
Quarter: 2013Q2

REPORT INFORMATION
  Report Type: Spontaneous
  Country: CH (occurrence: CH)
  Receive Date: 20130508
  Receipt Date: 20130524
  Transmission Date: 20140414
  Serious: Yes (Hospitalization)
  Sender: FDA-Public Use
  Company Number: PHHY2013CH043770

PATIENT
  Age: 79 Year
  Sex: Female

DRUGS (8)
  1. METFORMIN [Suspect]
     Indication: DIABETES MELLITUS
     Dosage: 1000 MG, BID
     Route: 048
  2. LANTUS [Concomitant]
  3. BISOPROLOL [Concomitant]
     Dosage: 5 MG
  4. RAMIPRIL [Concomitant]
     Dosage: 5 MG
  5. HYDROCHLORTHIAZID [Concomitant]
     Dosage: 25 MG
  6. TORASEMID [Concomitant]
     Dosage: 5 MG
  7. ATORVASTATIN [Concomitant]
     Dosage: 20 MG
  8. METOCLOPRAMIDE [Concomitant]
     Indication: GASTROENTERITIS VIRAL

REACTIONS (17)
  - Renal failure acute [Recovering/Resolving]
  - Lactic acidosis [Not Recovered/Not Resolved]
  - Haemodynamic instability [Unknown]
  - Anion gap increased [Not Recovered/Not Resolved]
  - Acid base balance abnormal [Not Recovered/Not Resolved]
  - Tachypnoea [Unknown]
  - Tachycardia [Unknown]
  - Diarrhoea [Not Recovered/Not Resolved]
  - Abdominal pain [Not Recovered/Not Resolved]
  - Thirst [Not Recovered/Not Resolved]
  - Nausea [Not Recovered/Not Resolved]
  - Vomiting [Not Recovered/Not Resolved]
  - Agitation [Recovered/Resolved]
  - Renal impairment [Recovering/Resolving]
  - Hyperphosphataemia [Recovering/Resolving]
  - Hyperkalaemia [Recovering/Resolving]
  - Blood creatinine increased [Recovering/Resolving]
